FAERS Safety Report 19651340 (Version 1)
Quarter: 2021Q3

REPORT INFORMATION
  Report Type: Spontaneous
  Country: IR (occurrence: IR)
  Receive Date: 20210803
  Receipt Date: 20210803
  Transmission Date: 20211014
  Serious: Yes (Other)
  Sender: FDA-Public Use
  Company Number: IR-MYLANLABS-2021M1047526

PATIENT
  Sex: Female

DRUGS (7)
  1. PEMETREXED. [Suspect]
     Active Substance: PEMETREXED
     Indication: PERITONEAL MESOTHELIOMA MALIGNANT
     Dosage: UNK
     Route: 065
     Dates: start: 2016
  2. RITUXIMAB. [Suspect]
     Active Substance: RITUXIMAB
     Indication: FOLLICULAR LYMPHOMA STAGE I
     Dosage: UNK
     Route: 065
     Dates: start: 2009
  3. CYCLOPHOSPHAMIDE. [Suspect]
     Active Substance: CYCLOPHOSPHAMIDE
     Indication: FOLLICULAR LYMPHOMA STAGE I
     Dosage: UNK
     Route: 065
     Dates: start: 2009
  4. PREDNISONE. [Suspect]
     Active Substance: PREDNISONE
     Indication: FOLLICULAR LYMPHOMA STAGE I
     Dosage: UNK
     Route: 065
     Dates: start: 2009
  5. DOXORUBICIN [Suspect]
     Active Substance: DOXORUBICIN
     Indication: FOLLICULAR LYMPHOMA STAGE I
     Dosage: UNK
     Route: 065
     Dates: start: 2009
  6. VINCRISTINE [Suspect]
     Active Substance: VINCRISTINE
     Indication: FOLLICULAR LYMPHOMA STAGE I
     Dosage: UNK
     Route: 065
     Dates: start: 2009
  7. CISPLATIN. [Suspect]
     Active Substance: CISPLATIN
     Indication: PERITONEAL MESOTHELIOMA MALIGNANT
     Dosage: UNK
     Route: 065
     Dates: start: 2016

REACTIONS (1)
  - Rectal adenocarcinoma [Unknown]

NARRATIVE: CASE EVENT DATE: 201905
